FAERS Safety Report 4520750-6 (Version None)
Quarter: 2004Q4

REPORT INFORMATION
  Report Type: 
  Country: None (occurrence: None)
  Receive Date: 20041028
  Receipt Date: 20031016
  Transmission Date: 20050328
  Serious: No
  Sender: FDA-Public Use
  Company Number: HQWYE394622OCT03

PATIENT
  Sex: Female

DRUGS (1)
  1. PREMARIN [Suspect]
     Dosage: UNSPECIFIED DOSAGE  DAILY FOR A NUMBER OF YEARS, ORAL
     Route: 048

REACTIONS (1)
  - THROMBOSIS [None]
